FAERS Safety Report 6358397-1 (Version None)
Quarter: 2009Q3

REPORT INFORMATION
  Report Type: 
  Country: None (occurrence: None)
  Receive Date: 20090911
  Receipt Date: 20090901
  Transmission Date: 20100115
  Serious: Yes (Death)
  Sender: FDA-Public Use
  Company Number: A-JP2009-27103

PATIENT
  Age: 68 Year
  Sex: Male

DRUGS (3)
  1. TRACLEER [Suspect]
     Indication: PULMONARY HYPERTENSION
     Dosage: 31.25 MG, BID, ORAL
     Route: 048
     Dates: start: 20090817, end: 20090824
  2. DOBUTAMINE HCL [Concomitant]
  3. OXYGEN (OXYGEN) [Concomitant]

REACTIONS (5)
  - CONDITION AGGRAVATED [None]
  - COR PULMONALE [None]
  - INFERIOR VENA CAVA DILATATION [None]
  - RESPIRATORY FAILURE [None]
  - RIGHT VENTRICULAR FAILURE [None]
